FAERS Safety Report 4808332-X (Version None)
Quarter: 2005Q4

REPORT INFORMATION
  Report Type: 
  Country: None (occurrence: None)
  Receive Date: 20051025
  Receipt Date: 20050926
  Transmission Date: 20060501
  Serious: Yes (Disabling)
  Sender: FDA-Public Use
  Company Number: 2005GB01871

PATIENT
  Age: 66 Year
  Sex: Male
  Weight: 114 kg

DRUGS (12)
  1. CRESTOR [Suspect]
     Indication: BLOOD CHOLESTEROL
     Route: 048
     Dates: start: 20031210, end: 20050601
  2. WARFARIN [Concomitant]
     Dosage: VARIABLE
     Route: 048
  3. CITALOPRAM [Concomitant]
     Route: 048
  4. FOLIC ACID [Concomitant]
     Route: 048
  5. LANSOPRAZOLE [Concomitant]
     Route: 048
  6. METFORMIN [Concomitant]
     Route: 048
  7. SULFASALAZINE [Concomitant]
     Route: 048
  8. METHOTREXATE [Concomitant]
     Route: 048
  9. ATENOLOL [Concomitant]
     Route: 048
  10. AMLODIPINE [Concomitant]
     Route: 048
  11. PERINDOPRIL [Concomitant]
     Route: 065
  12. BUMETANIDE [Concomitant]
     Route: 065

REACTIONS (3)
  - DECREASED APPETITE [None]
  - NAUSEA [None]
  - WEIGHT DECREASED [None]
